FAERS Safety Report 24023617 (Version 3)
Quarter: 2024Q3

REPORT INFORMATION
  Report Type: Report from Study
  Country: AU (occurrence: AU)
  Receive Date: 20240627
  Receipt Date: 20240710
  Transmission Date: 20241017
  Serious: No
  Sender: ROCHE
  Company Number: AU-ROCHE-3131227

PATIENT
  Age: 56 Year
  Sex: Female

DRUGS (14)
  1. ALECTINIB [Suspect]
     Active Substance: ALECTINIB
     Indication: Non-small cell lung cancer
     Route: 048
     Dates: start: 20210825
  2. ALECTINIB [Concomitant]
     Active Substance: ALECTINIB
     Indication: Lung neoplasm malignant
     Dates: start: 20210507
  3. BRIVARACETAM [Concomitant]
     Active Substance: BRIVARACETAM
     Indication: Epilepsy
     Route: 048
     Dates: start: 20210915, end: 20211130
  4. BRIVARACETAM [Concomitant]
     Active Substance: BRIVARACETAM
     Route: 048
     Dates: start: 20211130
  5. FUROSEMIDE [Concomitant]
     Active Substance: FUROSEMIDE
     Indication: Oedema
     Route: 048
     Dates: start: 20211130
  6. MAGNESIUM ASPARTATE [Concomitant]
     Active Substance: MAGNESIUM ASPARTATE
     Indication: Magnesium deficiency
     Route: 048
  7. BREXPIPRAZOLE [Concomitant]
     Active Substance: BREXPIPRAZOLE
     Indication: Depression
     Dates: start: 20220308, end: 20220712
  8. BREXPIPRAZOLE [Concomitant]
     Active Substance: BREXPIPRAZOLE
     Dates: start: 20221004
  9. LAMOTRIGINE [Concomitant]
     Active Substance: LAMOTRIGINE
     Dosage: INDICATION MOOD
     Route: 065
     Dates: end: 20220307
  10. LAMOTRIGINE [Concomitant]
     Active Substance: LAMOTRIGINE
     Route: 048
     Dates: start: 20230214, end: 20230215
  11. LAMOTRIGINE [Concomitant]
     Active Substance: LAMOTRIGINE
     Route: 048
     Dates: start: 20230215, end: 20230516
  12. LAMOTRIGINE [Concomitant]
     Active Substance: LAMOTRIGINE
     Route: 048
     Dates: start: 20230516
  13. DULOXETINE [Concomitant]
     Active Substance: DULOXETINE
     Route: 048
     Dates: start: 20230506
  14. QUETIAPINE [Concomitant]
     Active Substance: QUETIAPINE
     Route: 048
     Dates: start: 20230516

REACTIONS (2)
  - Cough [Recovering/Resolving]
  - Dyspnoea [Recovering/Resolving]

NARRATIVE: CASE EVENT DATE: 20211022
